FAERS Safety Report 12540950 (Version 1)
Quarter: 2016Q3

REPORT INFORMATION
  Report Type: Spontaneous
  Country: US (occurrence: US)
  Receive Date: 20160708
  Receipt Date: 20160708
  Transmission Date: 20161109
  Serious: No
  Sender: FDA-Public Use
  Company Number: US-ACTELION-A-NJ2016-138220

PATIENT
  Age: 83 Year
  Sex: Male

DRUGS (7)
  1. VALCHLOR [Suspect]
     Active Substance: MECHLORETHAMINE
     Indication: MYCOSIS FUNGOIDES
     Dosage: UNK
     Route: 061
     Dates: start: 201605
  2. BEXAROTENE. [Concomitant]
     Active Substance: BEXAROTENE
  3. TRIAMTERENE AND HYDROCHLOROTHIAZIDE [Concomitant]
     Active Substance: HYDROCHLOROTHIAZIDE\TRIAMTERENE
  4. ALEVE [Concomitant]
     Active Substance: NAPROXEN SODIUM
  5. PRAVASTATIN. [Concomitant]
     Active Substance: PRAVASTATIN
     Dosage: 40 MG, UNK
  6. ECOTRIN [Concomitant]
     Active Substance: ASPIRIN
  7. LEVOTHYROXINE. [Concomitant]
     Active Substance: LEVOTHYROXINE
     Dosage: 25 UNK, UNK

REACTIONS (1)
  - Therapy non-responder [Unknown]
